FAERS Safety Report 4820526-6 (Version None)
Quarter: 2005Q4

REPORT INFORMATION
  Report Type: 
  Country: None (occurrence: None)
  Receive Date: 20051104
  Receipt Date: 20051026
  Transmission Date: 20060501
  Serious: Yes (Hospitalization)
  Sender: FDA-Public Use
  Company Number: 2005UW16196

PATIENT
  Sex: Female

DRUGS (7)
  1. CRESTOR [Suspect]
     Indication: HYPERCHOLESTEROLAEMIA
     Route: 048
  2. TOPROL-XL [Concomitant]
  3. LASIX [Concomitant]
  4. PROCARDIA [Concomitant]
  5. DILTIAZEM HCL [Concomitant]
  6. DIGOXIN [Concomitant]
  7. GLUCOTROL [Concomitant]

REACTIONS (3)
  - FALL [None]
  - RENAL FAILURE [None]
  - RHABDOMYOLYSIS [None]
